FAERS Safety Report 17217847 (Version 1)
Quarter: 2019Q4

REPORT INFORMATION
  Report Type: Spontaneous
  Country: GB (occurrence: GB)
  Receive Date: 20191231
  Receipt Date: 20191231
  Transmission Date: 20200122
  Serious: Yes (Life-Threatening, Other)
  Sender: FDA-Public Use
  Company Number: GB-TEVA-2019-GB-1159411

PATIENT
  Age: 30 Year
  Sex: Female
  Weight: 90 kg

DRUGS (6)
  1. CIMETIDINE HYDROCHLORIDE. [Concomitant]
     Active Substance: CIMETIDINE HYDROCHLORIDE
  2. VENLAFAXINE HYDROCHLORIDE. [Concomitant]
     Active Substance: VENLAFAXINE HYDROCHLORIDE
  3. FEXOFENADINE HYDROCHLORIDE. [Concomitant]
     Active Substance: FEXOFENADINE HYDROCHLORIDE
  4. DIAZEPAM. [Concomitant]
     Active Substance: DIAZEPAM
  5. MONTELUKAST [Suspect]
     Active Substance: MONTELUKAST SODIUM
     Indication: HYPERSENSITIVITY
     Dosage: 20 MG
     Route: 048
     Dates: start: 20190401
  6. DIHYDROCODEINE [Concomitant]
     Active Substance: DIHYDROCODEINE

REACTIONS (3)
  - Suicidal behaviour [Recovering/Resolving]
  - Emotional distress [Recovering/Resolving]
  - Dissociation [Recovering/Resolving]

NARRATIVE: CASE EVENT DATE: 20191102
